FAERS Safety Report 4928956-9 (Version None)
Quarter: 2006Q1

REPORT INFORMATION
  Report Type: 
  Country: None (occurrence: None)
  Receive Date: 20060301
  Receipt Date: 20060227
  Transmission Date: 20060701
  Serious: Yes (Hospitalization, Other)
  Sender: FDA-Public Use
  Company Number: US-GLAXOSMITHKLINE-A0595351A

PATIENT
  Age: 55 Year
  Sex: Male

DRUGS (1)
  1. LAMICTAL [Suspect]
     Indication: BIPOLAR DISORDER
     Route: 048

REACTIONS (3)
  - DEHYDRATION [None]
  - RENAL FAILURE [None]
  - STEVENS-JOHNSON SYNDROME [None]
